FAERS Safety Report 21889689 (Version 2)
Quarter: 2023Q1

REPORT INFORMATION
  Report Type: Report from Study
  Country: IE (occurrence: IE)
  Receive Date: 20230120
  Receipt Date: 20230202
  Transmission Date: 20230418
  Serious: No
  Sender: FDA-Public Use
  Company Number: IE-JNJFOC-20221249433

PATIENT
  Age: 38 Year
  Sex: Female

DRUGS (2)
  1. STELARA [Suspect]
     Active Substance: USTEKINUMAB
     Indication: Psoriasis
     Dosage: STRENGTH: 90.00 MG/ML
     Route: 058
     Dates: start: 20221221
  2. STELARA [Suspect]
     Active Substance: USTEKINUMAB

REACTIONS (3)
  - Psoriasis [Unknown]
  - Device deployment issue [Unknown]
  - Off label use [Unknown]

NARRATIVE: CASE EVENT DATE: 20221221
